FAERS Safety Report 4748538-1 (Version None)
Quarter: 2005Q3

REPORT INFORMATION
  Report Type: 
  Country: None (occurrence: None)
  Receive Date: 20050819
  Receipt Date: 20050801
  Transmission Date: 20060218
  Serious: Yes (Hospitalization, Disabling)
  Sender: FDA-Public Use
  Company Number: DE-BOEHRINGER INGELHEIM PHARMACEUTICALS, INC.-2005-DE-02978DE

PATIENT
  Sex: Male
  Weight: 66.5 kg

DRUGS (1)
  1. TIPRANAVIR + RITONAVIR CO-ADMIN [Suspect]
     Indication: HIV INFECTION
     Route: 048

REACTIONS (3)
  - PYREXIA [None]
  - RENAL FAILURE [None]
  - VISCERAL LEISHMANIASIS [None]
